FAERS Safety Report 6123074-9 (Version None)
Quarter: 2009Q1

REPORT INFORMATION
  Report Type: 
  Country: None (occurrence: None)
  Receive Date: 20090318
  Receipt Date: 20090306
  Transmission Date: 20090719
  Serious: Yes (Other)
  Sender: FDA-Public Use
  Company Number: FR-PFIZER INC-2008152594

PATIENT

DRUGS (2)
  1. LYRICA [Suspect]
     Indication: PARTIAL SEIZURES
     Dosage: 300 MG, UNK
     Route: 048
     Dates: start: 20070524
  2. KEPPRA [Concomitant]
     Indication: PARTIAL SEIZURES
     Dosage: UNK
     Route: 048
     Dates: start: 20041209

REACTIONS (3)
  - BLOOD TESTOSTERONE DECREASED [None]
  - INFERTILITY MALE [None]
  - SPERMATOZOA PROGRESSIVE MOTILITY DECREASED [None]
